FAERS Safety Report 9801508 (Version 1)
Quarter: 2014Q1

REPORT INFORMATION
  Report Type: Spontaneous
  Country: US (occurrence: US)
  Receive Date: 20140107
  Receipt Date: 20140107
  Transmission Date: 20141002
  Serious: No
  Sender: FDA-Public Use
  Company Number: US-GILEAD-US-CVT-100526

PATIENT
  Sex: Female

DRUGS (5)
  1. RANEXA [Suspect]
     Indication: ANGINA PECTORIS
     Route: 048
  2. ASPIRIN                            /00002701/ [Concomitant]
  3. COUMADIN [Concomitant]
  4. COQ10 [Concomitant]
  5. CARVEDILOL [Concomitant]

REACTIONS (1)
  - Muscle spasms [Unknown]
